FAERS Safety Report 5802157-4 (Version None)
Quarter: 2008Q3

REPORT INFORMATION
  Report Type: 
  Country: None (occurrence: None)
  Receive Date: 20080707
  Receipt Date: 20080627
  Transmission Date: 20090109
  Serious: Yes (Hospitalization)
  Sender: FDA-Public Use
  Company Number: SE-ROCHE-566146

PATIENT

DRUGS (5)
  1. CAPECITABINE [Suspect]
     Route: 065
     Dates: start: 20080429
  2. CAPECITABINE [Suspect]
     Dosage: DOSE REDUCED TO 75 %, DOSE DELAYED FOR 1 WEEK
     Route: 065
  3. BEVACIZUMAB [Suspect]
     Dosage: DOSE DELAYED.
     Route: 065
  4. OXALIPLATIN [Suspect]
     Route: 065
     Dates: start: 20080429
  5. OXALIPLATIN [Suspect]
     Dosage: DOSE REDUCED TO 75 %, DOSE DELAYED FOR 1 WEEK
     Route: 065

REACTIONS (5)
  - DEHYDRATION [None]
  - DIARRHOEA [None]
  - ELECTROLYTE IMBALANCE [None]
  - NAUSEA [None]
  - VOMITING [None]
